FAERS Safety Report 6965956-1 (Version None)
Quarter: 2010Q3

REPORT INFORMATION
  Report Type: 
  Country: None (occurrence: None)
  Receive Date: 20100823
  Receipt Date: 20100512
  Transmission Date: 20110219
  Serious: No
  Sender: FDA-Public Use
  Company Number: 011803

PATIENT
  Sex: Female
  Weight: 61.3 kg

DRUGS (11)
  1. CIMZIA [Suspect]
     Indication: RHEUMATOID ARTHRITIS
     Dosage: (SUBCUTANEOUS)
     Route: 058
     Dates: start: 20090801, end: 20091201
  2. PREDNISONE [Concomitant]
  3. EVOXAC [Concomitant]
  4. PLAQUENIL /00001501/ [Concomitant]
  5. IMURAN [Concomitant]
  6. METHOTREXATE [Concomitant]
  7. FOLIC ACID [Concomitant]
  8. ACETYLSALICYLIC ACID [Concomitant]
  9. WELLBUTRIN [Concomitant]
  10. VICODIN [Concomitant]
  11. VITAMIN D [Concomitant]

REACTIONS (1)
  - HERPES ZOSTER [None]
